FAERS Safety Report 11071863 (Version 1)
Quarter: 2015Q2

REPORT INFORMATION
  Report Type: Spontaneous
  Country: CA (occurrence: None)
  Receive Date: 20150424
  Receipt Date: 20150424
  Transmission Date: 20150821
  Serious: Yes (Life-Threatening, Hospitalization, Other)
  Sender: FDA-Public Use
  Company Number: 2015JUB00104

PATIENT
  Age: 12 Year
  Sex: Female
  Weight: 51 kg

DRUGS (1)
  1. BUPROPION ( EXTENDED RELEASE) [Suspect]
     Active Substance: BUPROPION
     Route: 048

REACTIONS (10)
  - Choreoathetosis [None]
  - Suicide attempt [None]
  - Capillary nail refill test abnormal [None]
  - Tachycardia [None]
  - Nystagmus [None]
  - Myoclonus [None]
  - Generalised tonic-clonic seizure [None]
  - Electrocardiogram QT prolonged [None]
  - Rhabdomyolysis [None]
  - Intentional overdose [None]
